FAERS Safety Report 9088809 (Version 1)
Quarter: 2013Q1

REPORT INFORMATION
  Report Type: Spontaneous
  Country: US (occurrence: US)
  Receive Date: 20130201
  Receipt Date: 20130201
  Transmission Date: 20140127
  Serious: No
  Sender: FDA-Public Use
  Company Number: US-ABBOTT-12P-163-1024990-00

PATIENT
  Sex: Female

DRUGS (3)
  1. HUMIRA [Suspect]
     Indication: CROHN^S DISEASE
     Dates: start: 200711, end: 200903
  2. HUMIRA [Suspect]
     Dates: start: 200911
  3. HUMIRA [Suspect]
     Dates: start: 2012

REACTIONS (4)
  - Anal fistula [Recovered/Resolved]
  - Pyrexia [Recovered/Resolved]
  - Muscle spasms [Recovered/Resolved]
  - Vaginal abscess [Not Recovered/Not Resolved]
